FAERS Safety Report 10707141 (Version 1)
Quarter: 2015Q1

REPORT INFORMATION
  Report Type: Spontaneous
  Country: US (occurrence: None)
  Receive Date: 20150112
  Receipt Date: 20150112
  Transmission Date: 20150721
  Serious: Yes (Hospitalization)
  Sender: FDA-Public Use
  Company Number: None

PATIENT
  Sex: Female

DRUGS (2)
  1. CELECOXIB. [Suspect]
     Active Substance: CELECOXIB
     Indication: CENTRAL NERVOUS SYSTEM INFLAMMATION
     Dosage: ONE CAPSULE
     Route: 048
     Dates: start: 20141217, end: 20141221
  2. CELECOXIB. [Suspect]
     Active Substance: CELECOXIB
     Indication: SPINAL DISORDER
     Dosage: ONE CAPSULE
     Route: 048
     Dates: start: 20141217, end: 20141221

REACTIONS (2)
  - Muscle spasms [None]
  - Condition aggravated [None]

NARRATIVE: CASE EVENT DATE: 20141217
